FAERS Safety Report 8146878-X (Version None)
Quarter: 2012Q1

REPORT INFORMATION
  Report Type: 
  Country: None (occurrence: None)
  Receive Date: 20120217
  Receipt Date: 20120210
  Transmission Date: 20120608
  Serious: Yes (Other)
  Sender: FDA-Public Use
  Company Number: US-ABBOTT-11P-163-0712345-00

PATIENT
  Sex: Male
  Weight: 93.07 kg

DRUGS (3)
  1. ITRACONAZOLE [Suspect]
  2. HUMIRA [Suspect]
     Indication: PSORIASIS
     Dates: start: 20081202, end: 20101201
  3. HUMIRA [Suspect]
     Indication: PSORIATIC ARTHROPATHY

REACTIONS (8)
  - LYMPHADENOPATHY [None]
  - IMMUNODEFICIENCY [None]
  - NEOPLASM MALIGNANT [None]
  - EMOTIONAL DISTRESS [None]
  - INFLUENZA LIKE ILLNESS [None]
  - OFF LABEL USE [None]
  - HISTOPLASMOSIS [None]
  - PSORIASIS [None]
